FAERS Safety Report 23978305 (Version 1)
Quarter: 2024Q2

REPORT INFORMATION
  Report Type: Spontaneous
  Country: JP (occurrence: JP)
  Receive Date: 20240614
  Receipt Date: 20240614
  Transmission Date: 20240716
  Serious: Yes (Hospitalization)
  Sender: FDA-Public Use
  Company Number: JP-DSPHARMA-2024SMP008416

PATIENT

DRUGS (2)
  1. LATUDA [Suspect]
     Active Substance: LURASIDONE HYDROCHLORIDE
     Indication: Schizophrenia
     Dosage: 20 MG, QD
     Route: 048
  2. BLONANSERIN [Suspect]
     Active Substance: BLONANSERIN
     Indication: Product used for unknown indication
     Dosage: 20 MG, QD
     Route: 062

REACTIONS (4)
  - Blood pressure decreased [Unknown]
  - Off label use [Unknown]
  - Prescribed underdose [Unknown]
  - Off label use [Unknown]
